FAERS Safety Report 5179983-0 (Version None)
Quarter: 2006Q4

REPORT INFORMATION
  Report Type: 
  Country: None (occurrence: None)
  Receive Date: 20061219
  Receipt Date: 20061021
  Transmission Date: 20070319
  Serious: No
  Sender: FDA-Public Use
  Company Number: US-AMGEN-KDL197773

PATIENT
  Sex: Female

DRUGS (2)
  1. ENBREL [Suspect]
     Indication: PSORIATIC ARTHROPATHY
     Route: 058
     Dates: start: 20061012
  2. ENBREL [Suspect]
     Indication: PSORIASIS

REACTIONS (3)
  - FATIGUE [None]
  - MYALGIA [None]
  - VAGINAL DISCHARGE [None]
